FAERS Safety Report 4950641-8 (Version None)
Quarter: 2006Q1

REPORT INFORMATION
  Report Type: 
  Country: None (occurrence: None)
  Receive Date: 20060322
  Receipt Date: 20050823
  Transmission Date: 20060701
  Serious: Yes (Disabling)
  Sender: FDA-Public Use
  Company Number: US-MERCK-0508USA03926

PATIENT
  Age: 54 Year
  Sex: Male
  Weight: 95 kg

DRUGS (5)
  1. VIOXX [Suspect]
     Indication: BACK PAIN
     Route: 048
     Dates: start: 20020415, end: 20030926
  2. VIOXX [Suspect]
     Route: 048
     Dates: start: 19990801, end: 20000731
  3. HYDROCODONE HYDROCHLORIDE [Concomitant]
     Route: 065
  4. ALEVE [Concomitant]
     Route: 065
     Dates: start: 19950101
  5. NORTRIPTYLINE [Concomitant]
     Route: 065

REACTIONS (3)
  - CORONARY ARTERY RESTENOSIS [None]
  - MYOCARDIAL INFARCTION [None]
  - PRESCRIBED OVERDOSE [None]
